FAERS Safety Report 14362661 (Version 1)
Quarter: 2018Q1

REPORT INFORMATION
  Report Type: Spontaneous
  Country: US (occurrence: US)
  Receive Date: 20180108
  Receipt Date: 20180108
  Transmission Date: 20180509
  Serious: No
  Sender: FDA-Public Use
  Company Number: US-DEXPHARM-20170555

PATIENT
  Age: 64 Year
  Sex: Male

DRUGS (1)
  1. OMEPRAZOLE DELAYED RELEASE TABLETS 20 MG [Suspect]
     Active Substance: OMEPRAZOLE
     Indication: DYSPEPSIA
     Dosage: 40 MG, BID
     Route: 048
     Dates: start: 20170401, end: 20170415

REACTIONS (3)
  - Overdose [Recovered/Resolved]
  - Condition aggravated [Recovered/Resolved]
  - Drug ineffective [Unknown]

NARRATIVE: CASE EVENT DATE: 20170401
